FAERS Safety Report 7107391-1 (Version None)
Quarter: 2010Q4

REPORT INFORMATION
  Report Type: 
  Country: None (occurrence: None)
  Receive Date: 20101111
  Receipt Date: 20101111
  Transmission Date: 20110411
  Serious: Yes (Death)
  Sender: FDA-Public Use
  Company Number: None

PATIENT
  Age: 50 Year
  Sex: Male
  Weight: 86.1834 kg

DRUGS (1)
  1. JANUVIA [Suspect]
     Indication: TYPE 2 DIABETES MELLITUS
     Dosage: ONE TABLET ONCE A DAY PO
     Route: 048
     Dates: start: 20080508, end: 20100303

REACTIONS (2)
  - METASTASES TO LIVER [None]
  - PANCREATIC CARCINOMA STAGE IV [None]
